FAERS Safety Report 4998745-8 (Version None)
Quarter: 2006Q2

REPORT INFORMATION
  Report Type: 
  Country: None (occurrence: None)
  Receive Date: 20060509
  Receipt Date: 20060428
  Transmission Date: 20061013
  Serious: Yes (Hospitalization, Other)
  Sender: FDA-Public Use
  Company Number: 8016698

PATIENT
  Age: 46 Year
  Sex: Male

DRUGS (6)
  1. KEPPRA [Suspect]
     Indication: MUSCLE SPASMS
     Dosage: 500 MG 2/D PO
     Route: 048
     Dates: start: 20040101, end: 20060427
  2. KEPPRA [Suspect]
     Indication: MUSCLE SPASMS
     Dosage: 250 MG 2/D PO
     Route: 048
     Dates: start: 20060428
  3. TRAMADOL HCL [Suspect]
     Indication: MUSCLE SPASMS
     Dosage: 100 MG 2/D PO
     Route: 048
     Dates: start: 20060101
  4. TYLENOL (CAPLET) [Concomitant]
  5. LIDOCAINE PATCHES [Concomitant]
  6. VALIUM [Concomitant]

REACTIONS (11)
  - BLADDER OPERATION [None]
  - DEPRESSION [None]
  - DIZZINESS [None]
  - DYSARTHRIA [None]
  - HOSTILITY [None]
  - MEMORY IMPAIRMENT [None]
  - NERVOUS SYSTEM DISORDER [None]
  - NEUROGENIC BLADDER [None]
  - PLEURAL EFFUSION [None]
  - SOMNOLENCE [None]
  - SUICIDAL IDEATION [None]
